FAERS Safety Report 10154044 (Version 1)
Quarter: 2014Q2

REPORT INFORMATION
  Report Type: Spontaneous
  Country: US (occurrence: None)
  Receive Date: 20140502
  Receipt Date: 20140502
  Transmission Date: 20141212
  Serious: Yes (Hospitalization, Other)
  Sender: FDA-Public Use
  Company Number: ADR-2014-00731

PATIENT
  Age: 29 Year
  Sex: Female

DRUGS (2)
  1. COMPOUNDED BACLOFEN INTRATHECAL [Suspect]
     Indication: MUSCLE SPASTICITY
  2. COMPOUNDED MORPHINE INTRATHECAL [Suspect]

REACTIONS (3)
  - Pain in extremity [None]
  - Device dislocation [None]
  - Muscle spasms [None]
